FAERS Safety Report 4547255-0 (Version None)
Quarter: 2005Q1

REPORT INFORMATION
  Report Type: 
  Country: None (occurrence: None)
  Receive Date: 20050105
  Receipt Date: 20041217
  Transmission Date: 20050727
  Serious: Yes (Life-Threatening, Hospitalization, Other)
  Sender: FDA-Public Use
  Company Number: USA041080206

PATIENT
  Sex: Male

DRUGS (1)
  1. HUMATROPE [Suspect]
     Indication: HYPOPITUITARISM
     Dosage: 0.3 MG DAY
     Dates: start: 20040907

REACTIONS (5)
  - BACK PAIN [None]
  - BUTTOCK PAIN [None]
  - INJECTION SITE HAEMORRHAGE [None]
  - MUSCULOSKELETAL STIFFNESS [None]
  - TRIPLE VESSEL BYPASS GRAFT [None]
